FAERS Safety Report 5030890-3 (Version None)
Quarter: 2006Q2

REPORT INFORMATION
  Report Type: 
  Country: None (occurrence: None)
  Receive Date: 20060504
  Receipt Date: 20060125
  Transmission Date: 20061013
  Serious: Yes (Other)
  Sender: FDA-Public Use
  Company Number: 200512984BWH

PATIENT
  Age: 30 Year
  Sex: Male

DRUGS (2)
  1. LEVITRA [Suspect]
  2. TRAZODONE HCL [Concomitant]

REACTIONS (1)
  - PRIAPISM [None]
